FAERS Safety Report 21256266 (Version 2)
Quarter: 2022Q3

REPORT INFORMATION
  Report Type: Report from Study
  Country: CA (occurrence: CA)
  Receive Date: 20220825
  Receipt Date: 20220831
  Transmission Date: 20221027
  Serious: Yes (Hospitalization, Other)
  Sender: FDA-Public Use
  Company Number: CA-HLS-202201553

PATIENT
  Age: 39 Year
  Sex: Female

DRUGS (7)
  1. CLOZARIL [Suspect]
     Active Substance: CLOZAPINE
     Indication: Schizoaffective disorder bipolar type
     Dosage: EVERY EVENING (NIGHT), 100 MG TABLET, (2.5 TABLET)
     Route: 048
     Dates: start: 20220307
  2. ABILIFY MAINTENA [Concomitant]
     Active Substance: ARIPIPRAZOLE
     Indication: Product used for unknown indication
     Route: 030
  3. BISOPROLOL FUMARATE [Concomitant]
     Active Substance: BISOPROLOL FUMARATE
     Indication: Product used for unknown indication
     Dosage: AT EVENING
     Route: 048
     Dates: start: 20220728
  4. LEVOTHYROXINE [Concomitant]
     Active Substance: LEVOTHYROXINE
     Indication: Hypothyroidism
     Dosage: IN THE MORNING BEFORE BREAKFAST
     Route: 048
  5. ATROPINE SULFATE [Concomitant]
     Active Substance: ATROPINE SULFATE
     Indication: Drooling
     Dosage: PLACE 2 DROPS UNDER THE TOUNGE 2 (TWO) TIMES A DAY AS NEEDED
     Route: 060
     Dates: start: 20220509
  6. IMOVANE [Concomitant]
     Active Substance: ZOPICLONE
     Indication: Product used for unknown indication
     Dosage: AT NIGHT
     Route: 048
  7. SENOKOT [Concomitant]
     Active Substance: SENNOSIDES
     Indication: Product used for unknown indication
     Dosage: 2 TABLETS NIGHTLY
     Route: 048
     Dates: start: 20220728, end: 20220815

REACTIONS (14)
  - Apathy [Recovering/Resolving]
  - Constipation [Unknown]
  - Psychiatric decompensation [Recovering/Resolving]
  - Decreased appetite [Recovering/Resolving]
  - Depression [Recovered/Resolved]
  - Drooling [Unknown]
  - Heart rate increased [Unknown]
  - Asthenia [Recovering/Resolving]
  - Treatment noncompliance [Unknown]
  - Off label use [Not Recovered/Not Resolved]
  - Electrocardiogram QT prolonged [Unknown]
  - Schizoaffective disorder bipolar type [Recovering/Resolving]
  - Insomnia [Recovering/Resolving]
  - Tachycardia [Recovered/Resolved]

NARRATIVE: CASE EVENT DATE: 20220725
